FAERS Safety Report 12441342 (Version 1)
Quarter: 2016Q2

REPORT INFORMATION
  Report Type: Spontaneous
  Country: US (occurrence: None)
  Receive Date: 20160606
  Receipt Date: 20160606
  Transmission Date: 20160815
  Serious: Yes (Other)
  Sender: FDA-Public Use
  Company Number: None

PATIENT
  Age: 63 Year
  Sex: Male

DRUGS (1)
  1. ENBREL [Suspect]
     Active Substance: ETANERCEPT
     Indication: RHEUMATOID ARTHRITIS
     Dosage: 50 MG (1 ML) Q WEEK SC
     Route: 058
     Dates: start: 20160317

REACTIONS (2)
  - Liver injury [None]
  - Alcohol use [None]

NARRATIVE: CASE EVENT DATE: 20160603
